FAERS Safety Report 9830772 (Version 3)
Quarter: 2014Q1

REPORT INFORMATION
  Report Type: Spontaneous
  Country: US (occurrence: US)
  Receive Date: 20140120
  Receipt Date: 20140211
  Transmission Date: 20141002
  Serious: Yes (Other)
  Sender: FDA-Public Use
  Company Number: US-PERRIGO-14US000403

PATIENT
  Sex: Female

DRUGS (3)
  1. APAP DM 10MG PE COLD SEV COOL 234 [Suspect]
     Indication: NASOPHARYNGITIS
     Dosage: 2 CAPLETS, Q4H
     Route: 048
     Dates: start: 20140109, end: 20140110
  2. DRUGS USED IN DIABETES [Concomitant]
     Indication: DIABETES MELLITUS
     Route: 065
  3. THYROID HORMONES [Concomitant]
     Indication: THYROID DISORDER
     Route: 065

REACTIONS (2)
  - Convulsion [Recovered/Resolved]
  - Reaction to drug excipients [Recovered/Resolved]
